FAERS Safety Report 6279077-7 (Version None)
Quarter: 2009Q3

REPORT INFORMATION
  Report Type: 
  Country: None (occurrence: None)
  Receive Date: 20090720
  Receipt Date: 20090720
  Transmission Date: 20100115
  Serious: Yes (Other)
  Sender: FDA-Public Use
  Company Number: None

PATIENT
  Age: 48 Year
  Sex: Male
  Weight: 96.6162 kg

DRUGS (2)
  1. ZICAM COLD AND FLU NASAL SPRAY MATRIXX [Suspect]
     Indication: INFLUENZA
     Dosage: PER INSRUCTIONS NASAL
     Route: 045
     Dates: start: 20041212, end: 20050512
  2. ZICAM COLD AND FLU NASAL SPRAY MATRIXX [Suspect]
     Indication: NASOPHARYNGITIS
     Dosage: PER INSRUCTIONS NASAL
     Route: 045
     Dates: start: 20041212, end: 20050512

REACTIONS (2)
  - AGEUSIA [None]
  - ANOSMIA [None]
